FAERS Safety Report 4295093-9 (Version None)
Quarter: 2004Q1

REPORT INFORMATION
  Report Type: 
  Country: None (occurrence: None)
  Receive Date: 20040216
  Receipt Date: 20031015
  Transmission Date: 20041129
  Serious: Yes (Hospitalization)
  Sender: FDA-Public Use
  Company Number: JP-GLAXOSMITHKLINE-B0312093A

PATIENT
  Age: 49 Year
  Sex: Male
  Weight: 77 kg

DRUGS (7)
  1. VALTREX [Suspect]
     Indication: DRUG USE FOR UNKNOWN INDICATION
     Dosage: 500MG PER DAY
     Route: 048
     Dates: start: 20030412, end: 20031014
  2. LACTIC ACID [Suspect]
     Indication: ENTERITIS
     Route: 048
     Dates: start: 20030224, end: 20031014
  3. SULFAMETHOXAZOLE + TRIMETHOPRIM [Suspect]
     Indication: PNEUMOCYSTIS CARINII INFECTION
     Route: 048
     Dates: start: 20030413, end: 20031014
  4. ITRACONAZOLE [Suspect]
     Indication: SYSTEMIC MYCOSIS
     Dosage: 200MG PER DAY
     Route: 048
     Dates: start: 20031011, end: 20031014
  5. TACROLIMUS HYDRATE [Concomitant]
     Indication: GRAFT VERSUS HOST DISEASE
     Dosage: 1.5MG PER DAY
     Route: 048
     Dates: start: 20030306
  6. UNSPECIFIED IMMUNOSUPPRESSANTS [Concomitant]
  7. METHOTREXATE [Concomitant]
     Dates: start: 20030308, end: 20030313

REACTIONS (7)
  - ANAEMIA [None]
  - BONE MARROW TRANSPLANT [None]
  - FUNGAL INFECTION [None]
  - PETECHIAE [None]
  - PYREXIA [None]
  - THROMBOCYTOPENIA [None]
  - VIRAL INFECTION [None]
